FAERS Safety Report 20916793 (Version 1)
Quarter: 2022Q2

REPORT INFORMATION
  Report Type: Spontaneous
  Country: CA (occurrence: CA)
  Receive Date: 20220605
  Receipt Date: 20220605
  Transmission Date: 20220721
  Serious: Yes (Hospitalization)
  Sender: FDA-Public Use
  Company Number: CA-ABBVIE-22K-028-4420350-00

PATIENT
  Sex: Female

DRUGS (2)
  1. RINVOQ [Suspect]
     Active Substance: UPADACITINIB
     Indication: Rheumatoid arthritis
     Route: 048
     Dates: start: 202102, end: 20220520
  2. METHOTREXATE [Concomitant]
     Active Substance: METHOTREXATE
     Indication: Rheumatoid arthritis
     Route: 058
     Dates: start: 201708, end: 202205

REACTIONS (11)
  - Large intestine infection [Recovering/Resolving]
  - Diarrhoea [Unknown]
  - Chills [Not Recovered/Not Resolved]
  - Blood pressure increased [Unknown]
  - Confusional state [Unknown]
  - Dizziness [Unknown]
  - Vision blurred [Unknown]
  - Facial paralysis [Unknown]
  - Delirium [Unknown]
  - Sepsis [Unknown]
  - Pyrexia [Not Recovered/Not Resolved]

NARRATIVE: CASE EVENT DATE: 20210101
